FAERS Safety Report 8053376-0 (Version None)
Quarter: 2012Q1

REPORT INFORMATION
  Report Type: 
  Country: None (occurrence: None)
  Receive Date: 20120118
  Receipt Date: 20120112
  Transmission Date: 20120608
  Serious: Yes (Hospitalization)
  Sender: FDA-Public Use
  Company Number: US-GLAXOSMITHKLINE-A0790929A

PATIENT
  Age: 52 Year
  Sex: Male
  Weight: 140 kg

DRUGS (6)
  1. TOPROL-XL [Concomitant]
  2. TRICOR [Concomitant]
  3. AVANDIA [Suspect]
     Indication: TYPE 2 DIABETES MELLITUS
     Dosage: 8MG PER DAY
     Route: 048
     Dates: start: 20010801, end: 20041101
  4. LIPITOR [Concomitant]
  5. CELEBREX [Concomitant]
  6. GLUCOVANCE [Concomitant]

REACTIONS (4)
  - CARDIAC DISORDER [None]
  - MYOCARDIAL INFARCTION [None]
  - CORONARY ARTERY BYPASS [None]
  - CORONARY ARTERY DISEASE [None]
